FAERS Safety Report 20706169 (Version 2)
Quarter: 2022Q2

REPORT INFORMATION
  Report Type: Spontaneous
  Country: JP (occurrence: JP)
  Receive Date: 20220413
  Receipt Date: 20220623
  Transmission Date: 20220721
  Serious: Yes (Other)
  Sender: FDA-Public Use
  Company Number: JP-BAYER-2022A052855

PATIENT
  Age: 71 Year
  Sex: Male

DRUGS (1)
  1. STIVARGA [Suspect]
     Active Substance: REGORAFENIB
     Indication: Colon cancer
     Dosage: DAILY DOSE 160 MG
     Dates: start: 201401

REACTIONS (7)
  - Colon cancer metastatic [Unknown]
  - Metastases to liver [None]
  - Metastases to lung [None]
  - Fatigue [Unknown]
  - Decreased appetite [Unknown]
  - Biliary dilatation [None]
  - Pleural effusion [None]

NARRATIVE: CASE EVENT DATE: 20140101
